FAERS Safety Report 4590710-8 (Version None)
Quarter: 2005Q1

REPORT INFORMATION
  Report Type: 
  Country: None (occurrence: None)
  Receive Date: 20050224
  Receipt Date: 19980408
  Transmission Date: 20050727
  Serious: Yes (Hospitalization)
  Sender: FDA-Public Use
  Company Number: US-MERCK-98041363

PATIENT
  Age: 5 Year
  Sex: Female

DRUGS (5)
  1. ELSPAR [Suspect]
     Indication: ACUTE LYMPHOCYTIC LEUKAEMIA
     Route: 030
  2. VINCRISTINE [Concomitant]
     Route: 065
  3. PREDNISONE [Concomitant]
     Route: 065
  4. CYTARABINE [Concomitant]
     Route: 065
  5. METHOTREXATE [Concomitant]
     Route: 065

REACTIONS (4)
  - ASCITES [None]
  - PANCREATIC PSEUDOCYST [None]
  - PANCREATITIS HAEMORRHAGIC [None]
  - PLEURAL EFFUSION [None]
